FAERS Safety Report 25158429 (Version 1)
Quarter: 2025Q2

REPORT INFORMATION
  Report Type: Report from Study
  Country: TR (occurrence: TR)
  Receive Date: 20250404
  Receipt Date: 20250404
  Transmission Date: 20250716
  Serious: Yes (Hospitalization, Congenital Anomaly, Other)
  Sender: TEVA
  Company Number: TR-TEVA-VS-3204680

PATIENT
  Age: 3 Month
  Sex: Male
  Weight: 3 kg

DRUGS (1)
  1. COPAXONE [Suspect]
     Active Substance: GLATIRAMER ACETATE
     Indication: Multiple sclerosis
     Route: 065
     Dates: start: 20230731

REACTIONS (2)
  - Congenital hydrocephalus [Recovering/Resolving]
  - Foetal exposure during pregnancy [Unknown]
